FAERS Safety Report 5884703-8 (Version None)
Quarter: 2008Q3

REPORT INFORMATION
  Report Type: 
  Country: None (occurrence: None)
  Receive Date: 20080911
  Receipt Date: 20080826
  Transmission Date: 20090109
  Serious: Yes (Other)
  Sender: FDA-Public Use
  Company Number: 2008001213

PATIENT
  Age: 67 Year
  Sex: Male

DRUGS (1)
  1. MACUGEN [Suspect]
     Indication: DIABETIC RETINAL OEDEMA
     Dosage: (Q6W) ,INTRA-VITREAL

REACTIONS (2)
  - MACULAR OEDEMA [None]
  - VITREOUS DETACHMENT [None]
